FAERS Safety Report 6942324-X (Version None)
Quarter: 2010Q3

REPORT INFORMATION
  Report Type: 
  Country: None (occurrence: None)
  Receive Date: 20100826
  Receipt Date: 20100823
  Transmission Date: 20110219
  Serious: Yes (Hospitalization, Other)
  Sender: FDA-Public Use
  Company Number: DE-BRISTOL-MYERS SQUIBB COMPANY-15193527

PATIENT
  Age: 69 Year
  Sex: Male
  Weight: 91 kg

DRUGS (2)
  1. KARVEA TABS 300 MG [Suspect]
     Indication: HYPERTENSION
     Route: 048
     Dates: start: 20040101, end: 20100426
  2. SPIRONOLACTONE [Suspect]
     Indication: HYPERTENSION
     Dosage: FORM TABLETS; HEXAL.
     Route: 048
     Dates: start: 20090806, end: 20100427

REACTIONS (2)
  - ANAEMIA [None]
  - HEPATITIS ACUTE [None]
